FAERS Safety Report 4757580-6 (Version None)
Quarter: 2005Q3

REPORT INFORMATION
  Report Type: 
  Country: None (occurrence: None)
  Receive Date: 20050830
  Receipt Date: 20050816
  Transmission Date: 20060218
  Serious: Yes (Hospitalization)
  Sender: FDA-Public Use
  Company Number: DSA_26807_2005

PATIENT
  Age: 55 Year
  Sex: Female

DRUGS (5)
  1. LORAZEPAM [Suspect]
     Dosage: 8 TAB ONCE PO
     Route: 048
     Dates: start: 20050722, end: 20050722
  2. DALMADORM ^HOFFMANN^ [Suspect]
     Dosage: DF ONCE PO
     Route: 048
     Dates: start: 20050722, end: 20050722
  3. PLAVIX [Suspect]
     Dosage: 150 MG ONCE PO
     Route: 048
     Dates: start: 20050722, end: 20050722
  4. SORTIS [Suspect]
     Dosage: 10 TAB ONCE PO
     Route: 048
     Dates: start: 20050722, end: 20050722
  5. UNSPECIFIED BETA BLOCKER [Suspect]
     Dosage: 20 TAB ONCE PO
     Route: 048
     Dates: start: 20050722, end: 20050722

REACTIONS (4)
  - BRADYCARDIA [None]
  - INTENTIONAL MISUSE [None]
  - MULTIPLE DRUG OVERDOSE [None]
  - SOMNOLENCE [None]
